FAERS Safety Report 25272602 (Version 8)
Quarter: 2025Q3

REPORT INFORMATION
  Report Type: Spontaneous
  Country: GB (occurrence: GB)
  Receive Date: 20250506
  Receipt Date: 20250929
  Transmission Date: 20251020
  Serious: Yes (Life-Threatening, Other)
  Sender: MYLAN
  Company Number: GB-MYLANLABS-2025M1037409

PATIENT
  Age: 54 Year
  Sex: Male

DRUGS (12)
  1. CLOZAPINE [Suspect]
     Active Substance: CLOZAPINE
     Indication: Schizophrenia
     Dosage: 250 MILLIGRAM, BID (TWICE DAILY)
  2. LAMOTRIGINE [Concomitant]
     Active Substance: LAMOTRIGINE
     Dosage: 125 MILLIGRAM, PM (AT NIGHT; LONG STANDING)
  3. ESCITALOPRAM [Concomitant]
     Active Substance: ESCITALOPRAM OXALATE
     Dosage: 15 MILLIGRAM, QD (ONCE DAILY; LONG STANDING)
  4. DIAZEPAM [Concomitant]
     Active Substance: DIAZEPAM
  5. METFORMIN [Concomitant]
     Active Substance: METFORMIN HYDROCHLORIDE
     Dosage: 1000 MILLIGRAM, BID (TWICE DAILY; LONG STANDING)
  6. CHOLECALCIFEROL [Concomitant]
     Active Substance: CHOLECALCIFEROL
     Dosage: UNK, QD (800 UNITS, ONCE DAILY, LONG STANDING)
  7. EMPAGLIFLOZIN [Concomitant]
     Active Substance: EMPAGLIFLOZIN
     Dosage: 25 MILLIGRAM, QD (ONCE DAILY LONG STANDING)
  8. SCOPOLAMINE [Concomitant]
     Active Substance: SCOPOLAMINE
     Dosage: 300 MICROGRAM, QD (AT NIGHT; LONG STANDING)
  9. LISINOPRIL [Concomitant]
     Active Substance: LISINOPRIL
     Dosage: 5 MILLIGRAM, QD (ONCE DAILY, LONG STANDING)
     Dates: end: 20250428
  10. ATORVASTATIN [Concomitant]
     Active Substance: ATORVASTATIN
     Dosage: 10 MILLIGRAM, QD (ONCE DAILY; LONG STANDING)
     Dates: end: 20250428
  11. FUROSEMIDE [Concomitant]
     Active Substance: FUROSEMIDE
     Dosage: 20 MILLIGRAM, QD (ONCE DAILY; LONG STANDING)
     Dates: end: 20250428
  12. FILGRASTIM [Concomitant]
     Active Substance: FILGRASTIM
     Dosage: UNK, QW (WEEKLY)
     Dates: start: 20250430

REACTIONS (4)
  - Small cell lung cancer metastatic [Not Recovered/Not Resolved]
  - Leukocytosis [Not Recovered/Not Resolved]
  - Neutrophilia [Not Recovered/Not Resolved]
  - Off label use [Unknown]

NARRATIVE: CASE EVENT DATE: 20250506
